FAERS Safety Report 13896439 (Version 4)
Quarter: 2017Q3

REPORT INFORMATION
  Report Type: Spontaneous
  Country: DE (occurrence: DE)
  Receive Date: 20170823
  Receipt Date: 20170922
  Transmission Date: 20171127
  Serious: Yes (Death, Hospitalization)
  Sender: FDA-Public Use
  Company Number: DE-009507513-1708DEU009266

PATIENT
  Age: 64 Year
  Sex: Male
  Weight: 82 kg

DRUGS (10)
  1. KEYTRUDA [Suspect]
     Active Substance: PEMBROLIZUMAB
     Indication: BRONCHIAL CARCINOMA
     Dosage: 200 MG, DAILY
     Route: 042
     Dates: start: 20170629, end: 20170629
  2. SODIUM CHLORIDE. [Concomitant]
     Active Substance: SODIUM CHLORIDE
     Dosage: 0.9 % PERCENT
  3. CARMEN [Concomitant]
     Active Substance: LERCANIDIPINE
     Dosage: ^1-0-0^
  4. BELOC ZOK MITE [Concomitant]
     Active Substance: METOPROLOL SUCCINATE
     Dosage: ^1-0-0^
  5. CRIZOTINIB [Concomitant]
     Active Substance: CRIZOTINIB
     Indication: BRONCHIAL CARCINOMA
  6. ALBUTEROL. [Concomitant]
     Active Substance: ALBUTEROL
     Dosage: STRENGTH 2 HUBS, ^1-1-1^
  7. SPIRO COMP [Concomitant]
     Active Substance: FUROSEMIDE\SPIRONOLACTONE
     Dosage: ^1-0-0^
  8. TOREM [Concomitant]
     Active Substance: TORSEMIDE
     Dosage: ^1-0-0^
  9. VALSARTAN. [Concomitant]
     Active Substance: VALSARTAN
     Dosage: ^1-0-0^
  10. PANTOZOL [Concomitant]
     Active Substance: PANTOPRAZOLE SODIUM
     Dosage: 40 MG, ^1-0-0^

REACTIONS (6)
  - Peripheral vascular disorder [Fatal]
  - Product use issue [Unknown]
  - Condition aggravated [Fatal]
  - Product use in unapproved indication [Unknown]
  - General physical condition abnormal [Fatal]
  - Dyspnoea [Fatal]

NARRATIVE: CASE EVENT DATE: 20170629
